FAERS Safety Report 10997408 (Version 1)
Quarter: 2015Q2

REPORT INFORMATION
  Report Type: Spontaneous
  Country: US (occurrence: None)
  Receive Date: 20150407
  Receipt Date: 20150407
  Transmission Date: 20150821
  Serious: No
  Sender: FDA-Public Use
  Company Number: None

PATIENT
  Age: 82 Year
  Sex: Female
  Weight: 58.97 kg

DRUGS (6)
  1. CEPHALEXIN. [Concomitant]
     Active Substance: CEPHALEXIN
  2. NITROFURANTIN MONO CAP 100MG [Suspect]
     Active Substance: NITROFURANTOIN MONOHYDRATE
     Indication: CYSTITIS
     Dosage: 1 PILL 1 DAILY BY MOUTH
     Route: 048
     Dates: end: 201411
  3. MULTI VITA [Concomitant]
  4. ASPERIN [Concomitant]
  5. PRESSERVISION [Concomitant]
  6. CRANBERRY. [Concomitant]
     Active Substance: CRANBERRY

REACTIONS (3)
  - Blindness [None]
  - Eye infection [None]
  - Eye haemorrhage [None]

NARRATIVE: CASE EVENT DATE: 2014
